FAERS Safety Report 7546274-X (Version None)
Quarter: 2011Q2

REPORT INFORMATION
  Report Type: 
  Country: None (occurrence: None)
  Receive Date: 20110607
  Receipt Date: 20110523
  Transmission Date: 20111010
  Serious: Yes (Hospitalization)
  Sender: FDA-Public Use
  Company Number: 1000020028

PATIENT
  Age: 84 Year
  Sex: Female
  Weight: 42 kg

DRUGS (13)
  1. STARLIX (NATEGLINIDE) (TABLETS) (NATEGLIDINE) [Concomitant]
     Dates: end: 20110216
  2. RIOPAN (MAGALDRATE) (TABLETS) (MAGALDRATE) [Concomitant]
  3. CITALOPRAM HYDROBROMIDE [Suspect]
     Indication: DEPRESSION
     Dosage: 20 MG (20 MG, 1 IN 1 D),ORAL
     Route: 048
     Dates: end: 20110216
  4. ASPIRIN PROTECT (ACETYLSALICYLIC ACID) (TABLETS) (ACETYLSALICYLIC ACID [Concomitant]
  5. INSULIN LANTUS (INSULIN GLARGINE) (SOLUTION) (INSULIN GLARGINE) [Concomitant]
  6. RADEDORM (NITRAZEPAM) (TABLETS) (NITRAZEPAM) [Concomitant]
  7. RAMIPLUS STADA (RAMIPRIL, HYROCHLOROTHIAZIDE) (TABLETS) (RAMIPRIL, HYD [Concomitant]
     Dates: end: 20110216
  8. METOPROLOL-CORAX (METOPROLOL TARTRATE) (TABLETS) (METOPROLOL TARTRATE) [Concomitant]
  9. STILNOX (ZOLPIDEM) (TABLETS) (ZOLPIDEM) [Concomitant]
  10. ALENDRONIC ACID (ALENDRONIC ACID) (TABLETS) (ALENDRONIC ACID) [Concomitant]
  11. AMLODIPINE [Concomitant]
  12. GLIMEPIRIDE (GLIMEPRIRIDE) (TABLETS) (GLIMEPIRIDE) [Concomitant]
     Dates: end: 20110216
  13. RAMICARD (RAMIPRIL) (TABLETS) (RAMIPRIL) [Concomitant]

REACTIONS (17)
  - SYNCOPE [None]
  - PALPITATIONS [None]
  - BLOOD OSMOLARITY DECREASED [None]
  - BLOOD CALCIUM DECREASED [None]
  - INAPPROPRIATE ANTIDIURETIC HORMONE SECRETION [None]
  - BLOOD CHLORIDE DECREASED [None]
  - BLOOD BILIRUBIN INCREASED [None]
  - BLOOD THYROID STIMULATING HORMONE INCREASED [None]
  - BLOOD GLUCOSE INCREASED [None]
  - LIPASE DECREASED [None]
  - DIZZINESS [None]
  - HYPOGLYCAEMIA [None]
  - BLOOD PRESSURE INCREASED [None]
  - BLOOD CREATININE DECREASED [None]
  - EMPHYSEMA [None]
  - HEPATIC STEATOSIS [None]
  - BLOOD LACTATE DEHYDROGENASE INCREASED [None]
